FAERS Safety Report 6811411-9 (Version None)
Quarter: 2010Q2

REPORT INFORMATION
  Report Type: 
  Country: None (occurrence: None)
  Receive Date: 20100630
  Receipt Date: 20100419
  Transmission Date: 20101027
  Serious: No
  Sender: FDA-Public Use
  Company Number: US-AMGEN-KDL407393

PATIENT
  Sex: Female
  Weight: 109.9 kg

DRUGS (12)
  1. PROCRIT [Suspect]
     Indication: RENAL FAILURE CHRONIC
  2. INDERAL [Concomitant]
  3. BLOOD CELLS, PACKED HUMAN [Concomitant]
  4. PHOSLO [Concomitant]
  5. ALLOPURINOL [Concomitant]
  6. SODIUM BICARBONATE [Concomitant]
  7. TRILIPIX [Concomitant]
  8. TRAZODONE HYDROCHLORIDE [Concomitant]
  9. NORVASC [Concomitant]
  10. NEXIUM [Concomitant]
  11. ROCALTROL [Concomitant]
  12. FUROSEMIDE [Concomitant]

REACTIONS (1)
  - THERAPEUTIC RESPONSE DECREASED [None]
